FAERS Safety Report 5213895-9 (Version None)
Quarter: 2007Q1

REPORT INFORMATION
  Report Type: 
  Country: None (occurrence: None)
  Receive Date: 20070117
  Receipt Date: 20061117
  Transmission Date: 20070707
  Serious: Yes (Death)
  Sender: FDA-Public Use
  Company Number: 3773

PATIENT
  Age: 69 Year

DRUGS (2)
  1. METFORMIN HCL [Suspect]
     Dosage: PO
     Route: 048
  2. ROSIGLITAZONE [Suspect]
     Dosage: PO
     Route: 048

REACTIONS (1)
  - DEATH [None]
